FAERS Safety Report 7270050-9 (Version None)
Quarter: 2011Q1

REPORT INFORMATION
  Report Type: 
  Country: None (occurrence: None)
  Receive Date: 20110125
  Receipt Date: 20110110
  Transmission Date: 20110831
  Serious: Yes (Other)
  Sender: FDA-Public Use
  Company Number: NL-ACCORD-007909

PATIENT
  Age: 50 Year
  Sex: Male

DRUGS (3)
  1. CYCLOSPORINE [Suspect]
     Indication: HISTIOCYTOSIS HAEMATOPHAGIC
     Dosage: ORAL
     Route: 048
  2. ETOPOSIDE [Suspect]
     Indication: HISTIOCYTOSIS HAEMATOPHAGIC
     Dosage: INTRAVENOUS (NOT OTHERWISE SPECIFIED)
     Route: 042
  3. DEXAMETHASONE [Suspect]
     Indication: HISTIOCYTOSIS HAEMATOPHAGIC
     Dosage: ORAL
     Route: 048

REACTIONS (6)
  - CONDITION AGGRAVATED [None]
  - PYREXIA [None]
  - SERUM FERRITIN INCREASED [None]
  - BLOOD LACTATE DEHYDROGENASE INCREASED [None]
  - OFF LABEL USE [None]
  - PANCYTOPENIA [None]
